FAERS Safety Report 9994639 (Version 1)
Quarter: 2014Q1

REPORT INFORMATION
  Report Type: Spontaneous
  Country: FR (occurrence: FR)
  Receive Date: 20140311
  Receipt Date: 20140311
  Transmission Date: 20141002
  Serious: Yes (Hospitalization)
  Sender: FDA-Public Use
  Company Number: FR-ROCHE-1358817

PATIENT
  Age: 53 Year
  Sex: Female

DRUGS (2)
  1. VALIUM [Suspect]
     Indication: PRODUCT USED FOR UNKNOWN INDICATION
     Route: 048
     Dates: start: 20130810, end: 20130810
  2. LAROXYL [Suspect]
     Indication: PRODUCT USED FOR UNKNOWN INDICATION
     Dosage: 2G TOTAL
     Route: 048
     Dates: start: 20130810, end: 20130810

REACTIONS (4)
  - Coma [Recovered/Resolved]
  - Lung disorder [Recovering/Resolving]
  - Rhabdomyolysis [Recovered/Resolved]
  - Pulmonary embolism [Recovering/Resolving]
